FAERS Safety Report 8564200-1 (Version None)
Quarter: 2012Q3

REPORT INFORMATION
  Report Type: 
  Country: None (occurrence: None)
  Receive Date: 20120803
  Receipt Date: 20120724
  Transmission Date: 20120928
  Serious: Yes (Other)
  Sender: FDA-Public Use
  Company Number: US-ABBOTT-12P-163-0951088-00

PATIENT
  Sex: Female
  Weight: 74.91 kg

DRUGS (3)
  1. PRINDOLOL [Concomitant]
     Indication: HYPERTENSION
  2. HUMIRA [Suspect]
     Indication: RHEUMATOID ARTHRITIS
     Dates: start: 20080401, end: 20120601
  3. LIPITOR [Concomitant]
     Indication: HYPERLIPIDAEMIA

REACTIONS (8)
  - DEMYELINATION [None]
  - OPTIC NEUROPATHY [None]
  - VISION BLURRED [None]
  - CENTRAL NERVOUS SYSTEM LESION [None]
  - PROGRESSIVE MULTIFOCAL LEUKOENCEPHALOPATHY [None]
  - BLINDNESS [None]
  - OPTIC NEURITIS [None]
  - SINUS DISORDER [None]
